FAERS Safety Report 9058337 (Version 1)
Quarter: 2013Q1

REPORT INFORMATION
  Report Type: Spontaneous
  Country: US (occurrence: None)
  Receive Date: 20130205
  Receipt Date: 20130205
  Transmission Date: 20140127
  Serious: Yes (Other)
  Sender: FDA-Public Use
  Company Number: None

PATIENT
  Age: 58 Year
  Sex: Male
  Weight: 75.2 kg

DRUGS (2)
  1. ADVATE [Suspect]
     Indication: FACTOR VIII DEFICIENCY
     Dosage: 3871 INTERNATIONAL UNITS PREOP IV BOLUS
     Dates: start: 20121112, end: 20121112
  2. ADVATE [Suspect]
     Indication: HIP ARTHROPLASTY
     Dosage: 1074 INTERNATIONAL UNITS PERI/POST SURGERY IV DRIP
     Dates: start: 20121112, end: 20121112

REACTIONS (2)
  - Scotoma [None]
  - Carotid artery occlusion [None]
